FAERS Safety Report 6807534-0 (Version None)
Quarter: 2010Q2

REPORT INFORMATION
  Report Type: 
  Country: None (occurrence: None)
  Receive Date: 20100629
  Receipt Date: 20081026
  Transmission Date: 20101027
  Serious: Yes (Other)
  Sender: FDA-Public Use
  Company Number: US-PFIZER INC-2008090283

PATIENT
  Sex: Male

DRUGS (2)
  1. ZYVOX [Suspect]
  2. REGLAN [Suspect]

REACTIONS (2)
  - SEROTONIN SYNDROME [None]
  - THROMBOCYTOPENIA [None]
